FAERS Safety Report 5765336-0 (Version None)
Quarter: 2008Q2

REPORT INFORMATION
  Report Type: 
  Country: None (occurrence: None)
  Receive Date: 20080609
  Receipt Date: 20080609
  Transmission Date: 20081010
  Serious: Yes (Other)
  Sender: FDA-Public Use
  Company Number: None

PATIENT
  Age: 16 Year
  Sex: Female
  Weight: 40 kg

DRUGS (6)
  1. OXCARBAZEPINE [Suspect]
     Indication: CONVULSION
     Dosage: 750MG/900MG  QAM/QHS  PO  (DURATION: CURRENT HOME MEDICATION)
     Route: 048
  2. LINEZOLID [Suspect]
     Indication: PNEUMONIA
     Dosage: 600MG BID IV BOLUS
     Route: 040
     Dates: start: 20080403, end: 20080405
  3. VALIUM [Concomitant]
  4. ROBINUL [Concomitant]
  5. LEVOFLOXACIN [Concomitant]
  6. CLINDAMYCIN HCL [Concomitant]

REACTIONS (1)
  - SEROTONIN SYNDROME [None]
